FAERS Safety Report 24800609 (Version 1)
Quarter: 2025Q1

REPORT INFORMATION
  Report Type: Spontaneous
  Country: NL (occurrence: NL)
  Receive Date: 20250102
  Receipt Date: 20250102
  Transmission Date: 20250408
  Serious: Yes (Hospitalization, Other)
  Sender: AUROBINDO
  Company Number: NL-Intergal_Pharma_Ireland_Limited-AE-2024-0979

PATIENT
  Sex: Male

DRUGS (1)
  1. POLYETHYLENE GLYCOL 3350\POTASSIUM CHLORIDE\SODIUM BICARBONATE\SODIUM [Suspect]
     Active Substance: POLYETHYLENE GLYCOL 3350\POTASSIUM CHLORIDE\SODIUM BICARBONATE\SODIUM CHLORIDE
     Indication: Product used for unknown indication
     Route: 048

REACTIONS (7)
  - Condition aggravated [Unknown]
  - Hypersensitivity [Unknown]
  - Abnormal loss of weight [Unknown]
  - Drug ineffective [Unknown]
  - Abdominal symptom [Unknown]
  - Inadequate diet [Unknown]
  - Product use issue [Unknown]
